FAERS Safety Report 5626944-0 (Version None)
Quarter: 2008Q1

REPORT INFORMATION
  Report Type: 
  Country: None (occurrence: None)
  Receive Date: 20080212
  Receipt Date: 20071212
  Transmission Date: 20080703
  Serious: Yes (Other)
  Sender: FDA-Public Use
  Company Number: MK-6035598

PATIENT
  Age: 17 Year
  Sex: Female

DRUGS (2)
  1. AMNESTEEM [Suspect]
     Indication: DRUG USE FOR UNKNOWN INDICATION
     Dosage: 40 MG, EVERY OTHER DAY,ORAL; 80 MG;EVERY OTHER DAY;ORAL
     Route: 048
     Dates: start: 20070217, end: 20070606
  2. AMNESTEEM [Suspect]
     Indication: DRUG USE FOR UNKNOWN INDICATION
     Dosage: 40 MG, EVERY OTHER DAY,ORAL; 80 MG;EVERY OTHER DAY;ORAL
     Route: 048
     Dates: start: 20070217, end: 20070606

REACTIONS (2)
  - DRUG EXPOSURE DURING PREGNANCY [None]
  - PREGNANCY [None]
